FAERS Safety Report 9785796 (Version 2)
Quarter: 2014Q1

REPORT INFORMATION
  Report Type: Spontaneous
  Country: FR (occurrence: None)
  Receive Date: 20131223
  Receipt Date: 20140103
  Transmission Date: 20141002
  Serious: Yes (Life-Threatening)
  Sender: FDA-Public Use
  Company Number: SYM-2013-14177

PATIENT
  Age: 76 Year
  Sex: Male

DRUGS (7)
  1. FLAGYL (METRONIDAZOLE) (METRONIDAZOLE) [Suspect]
     Indication: LEGIONELLA INFECTION
     Route: 048
     Dates: start: 20131121, end: 20131127
  2. PARACETAMOL (PARACETAMOL) (PARACETAMOL) [Suspect]
     Indication: PRODUCT USED FOR UNKNOWN INDICATION
     Route: 048
     Dates: start: 20131017, end: 20131128
  3. TAHOR (ATORVASTATIN CALCIUM) [Suspect]
     Indication: DYSLIPIDAEMIA
     Route: 048
     Dates: start: 20131012, end: 20131127
  4. NORSET [Suspect]
     Indication: DEPRESSION
     Route: 048
     Dates: start: 20131017, end: 20131128
  5. AMIODARONE (AMIODARONE) (AMIODARONE) [Concomitant]
  6. PERINDOPRIL (PERINDOPRIL) (PERINDOPRIL) [Concomitant]
  7. LASILIX (FUROSEMIDE) (FUROSEMIDE) [Concomitant]

REACTIONS (4)
  - Liver injury [None]
  - Hepatic failure [None]
  - Cell death [None]
  - Cholestasis [None]
